FAERS Safety Report 21275528 (Version 1)
Quarter: 2022Q3

REPORT INFORMATION
  Report Type: Spontaneous
  Country: CN (occurrence: CN)
  Receive Date: 20220831
  Receipt Date: 20220831
  Transmission Date: 20221027
  Serious: Yes (Life-Threatening)
  Sender: FDA-Public Use
  Company Number: CN-SA-SAC20220829002533

PATIENT
  Age: 26 Year
  Sex: Male
  Weight: 65 kg

DRUGS (8)
  1. OXALIPLATIN [Suspect]
     Active Substance: OXALIPLATIN
     Indication: T-cell lymphoma
     Dosage: 200 GM QD
     Route: 041
     Dates: start: 20220823, end: 20220823
  2. DEXAMETHASONE [Suspect]
     Active Substance: DEXAMETHASONE
     Indication: Neoplasm
     Dosage: 200 MG QD
     Route: 041
     Dates: start: 20220823, end: 20220823
  3. GEMCITABINE HYDROCHLORIDE [Suspect]
     Active Substance: GEMCITABINE HYDROCHLORIDE
     Indication: Neoplasm
     Dosage: 1.6 G QD
     Route: 041
     Dates: start: 20220823, end: 20220823
  4. PALONOSETRON HYDROCHLORIDE [Suspect]
     Active Substance: PALONOSETRON HYDROCHLORIDE
     Indication: Antiemetic supportive care
     Dosage: 250 MG QD
     Route: 041
     Dates: start: 20220823, end: 20220823
  5. FOSAPREPITANT DIMEGLUMINE [Suspect]
     Active Substance: FOSAPREPITANT DIMEGLUMINE
     Indication: Antiemetic supportive care
     Dosage: 150 MG QD
     Route: 041
     Dates: start: 20220823, end: 20220823
  6. FOSAPREPITANT DIMEGLUMINE [Suspect]
     Active Substance: FOSAPREPITANT DIMEGLUMINE
     Indication: T-cell lymphoma
  7. PEGASPARGASE [Suspect]
     Active Substance: PEGASPARGASE
     Indication: Neoplasm
     Dosage: 4.5 ML QD
     Route: 030
     Dates: start: 20220823, end: 20220823
  8. SODIUM CHLORIDE [Concomitant]
     Active Substance: SODIUM CHLORIDE
     Indication: T-cell lymphoma
     Dosage: 150 ML
     Route: 041

REACTIONS (3)
  - Rash [Recovering/Resolving]
  - Swelling face [Recovering/Resolving]
  - Hypersensitivity [Recovering/Resolving]

NARRATIVE: CASE EVENT DATE: 20220823
